FAERS Safety Report 6340589-9 (Version None)
Quarter: 2009Q3

REPORT INFORMATION
  Report Type: 
  Country: None (occurrence: None)
  Receive Date: 20090902
  Receipt Date: 20090826
  Transmission Date: 20100115
  Serious: Yes (Death)
  Sender: FDA-Public Use
  Company Number: 2009JP003793

PATIENT
  Age: 64 Year
  Sex: Male
  Weight: 65 kg

DRUGS (3)
  1. PROGRAF [Suspect]
     Indication: RHEUMATOID ARTHRITIS
     Dosage: 1 MG, UID/QD, ORAL
     Route: 048
     Dates: start: 20080306, end: 20090617
  2. RHEUMATREX [Suspect]
     Dosage: 4 MG, WEEKLY, ORAL
     Route: 048
     Dates: start: 20070926, end: 20090617
  3. AIDEITO TABLET [Concomitant]

REACTIONS (9)
  - ABASIA [None]
  - ACUTE RESPIRATORY FAILURE [None]
  - AMYOTROPHIC LATERAL SCLEROSIS [None]
  - BULBAR PALSY [None]
  - CARDIO-RESPIRATORY ARREST [None]
  - PNEUMONIA [None]
  - PNEUMONIA ASPIRATION [None]
  - SUDDEN DEATH [None]
  - TROPICAL SPASTIC PARESIS [None]
